FAERS Safety Report 15541214 (Version 1)
Quarter: 2018Q4

REPORT INFORMATION
  Report Type: Spontaneous
  Country: US (occurrence: US)
  Receive Date: 20181023
  Receipt Date: 20181023
  Transmission Date: 20190205
  Serious: No
  Sender: FDA-Public Use
  Company Number: US-IPSEN BIOPHARMACEUTICALS, INC.-2018-16156

PATIENT
  Age: 67 Year
  Sex: Female

DRUGS (5)
  1. OCTREOTIDE. [Concomitant]
     Active Substance: OCTREOTIDE
     Dosage: NOT REPORTED
  2. COLESTID [Concomitant]
     Active Substance: COLESTIPOL HYDROCHLORIDE
     Dosage: NOT REPORTED
  3. XERMELO [Suspect]
     Active Substance: TELOTRISTAT ETHYL
     Indication: CARCINOID SYNDROME
     Dosage: 750 MG (250 MG,3 IN 1 D)
     Route: 048
     Dates: start: 20170913
  4. SOMATULINE [Concomitant]
     Active Substance: LANREOTIDE ACETATE
     Dosage: NOT REPORTED
  5. SOMATULINE [Suspect]
     Active Substance: LANREOTIDE ACETATE
     Indication: PRODUCT USED FOR UNKNOWN INDICATION
     Dosage: NOT REPORTED

REACTIONS (6)
  - Liver scan abnormal [Not Recovered/Not Resolved]
  - Macular degeneration [Unknown]
  - Blood chromogranin A increased [Unknown]
  - Diarrhoea [Recovered/Resolved]
  - Serum serotonin increased [Unknown]
  - Abdominal pain upper [Recovered/Resolved]

NARRATIVE: CASE EVENT DATE: 201809
